FAERS Safety Report 14900513 (Version 1)
Quarter: 2018Q2

REPORT INFORMATION
  Report Type: Spontaneous
  Country: US (occurrence: US)
  Receive Date: 20180427
  Receipt Date: 20180427
  Transmission Date: 20180711
  Serious: Yes (Hospitalization)
  Sender: FDA-Public Use
  Company Number: None

PATIENT
  Age: 84 Year
  Sex: Female

DRUGS (1)
  1. PROPAFENONE. [Suspect]
     Active Substance: PROPAFENONE
     Indication: ATRIAL FIBRILLATION
     Route: 048
     Dates: start: 20180423, end: 20180426

REACTIONS (5)
  - Asthenia [None]
  - Tremor [None]
  - Incorrect drug dosage form administered [None]
  - Dysphonia [None]
  - Drug dispensing error [None]

NARRATIVE: CASE EVENT DATE: 20180426
